FAERS Safety Report 5518126-8 (Version None)
Quarter: 2007Q4

REPORT INFORMATION
  Report Type: 
  Country: None (occurrence: None)
  Receive Date: 20071115
  Receipt Date: 20071108
  Transmission Date: 20080405
  Serious: Yes (Other)
  Sender: FDA-Public Use
  Company Number: GB-AVENTIS-200720349GDDC

PATIENT
  Age: 56 Year
  Sex: Female
  Weight: 103 kg

DRUGS (12)
  1. METRONIDAZOLE [Suspect]
     Indication: GIARDIASIS
     Route: 048
     Dates: start: 20070928, end: 20071005
  2. ALLOPURINOL [Concomitant]
     Dosage: DOSE: UNK
  3. BENDROFLUAZIDE [Concomitant]
     Dosage: DOSE: UNK
  4. CO-CODAMOL [Concomitant]
     Dosage: DOSE: UNK
  5. DILTIAZEM [Concomitant]
     Dosage: DOSE: UNK
  6. ESOMEPRAZOLE [Concomitant]
     Dosage: DOSE: UNK
  7. FEXOFENADINE [Concomitant]
     Dosage: DOSE: UNK
  8. FLIXOTIDE [Concomitant]
     Dosage: DOSE: UNK
  9. ALBUTEROL [Concomitant]
     Dosage: DOSE: UNK
  10. SALMETEROL [Concomitant]
     Dosage: DOSE: UNK
  11. SIMVASTATIN [Concomitant]
     Dosage: DOSE: UNK
  12. STEMETIL                           /00013301/ [Concomitant]
     Dosage: DOSE: UNK

REACTIONS (4)
  - CHOLESTASIS [None]
  - CHROMATURIA [None]
  - HEPATITIS [None]
  - JAUNDICE [None]
